FAERS Safety Report 23910742 (Version 1)
Quarter: 2024Q2

REPORT INFORMATION
  Report Type: Spontaneous
  Country: US (occurrence: US)
  Receive Date: 20240528
  Receipt Date: 20240528
  Transmission Date: 20240716
  Serious: No
  Sender: FDA-Public Use
  Company Number: US-AVADEL CNS PHARMACEUTICALS, LLC-2024AVA00298

PATIENT
  Age: 55 Year
  Sex: Female

DRUGS (2)
  1. LUMRYZ [Suspect]
     Active Substance: SODIUM OXYBATE
     Indication: Narcolepsy
     Dosage: 9 G, DAILY AT BEDTIME
     Route: 048
     Dates: start: 202402, end: 202402
  2. WAKIX [Concomitant]
     Active Substance: PITOLISANT HYDROCHLORIDE
     Dosage: UNK

REACTIONS (3)
  - Contusion [Unknown]
  - Somnambulism [Unknown]
  - Fall [Unknown]

NARRATIVE: CASE EVENT DATE: 20240201
